FAERS Safety Report 12467383 (Version 3)
Quarter: 2016Q3

REPORT INFORMATION
  Report Type: Spontaneous
  Country: US (occurrence: US)
  Receive Date: 20160615
  Receipt Date: 20160804
  Transmission Date: 20161109
  Serious: No
  Sender: FDA-Public Use
  Company Number: US-PFIZER INC-2016297648

PATIENT
  Age: 75 Year
  Sex: Female

DRUGS (3)
  1. ADVIL [Suspect]
     Active Substance: IBUPROFEN
     Indication: ARTHRALGIA
  2. ADVIL [Suspect]
     Active Substance: IBUPROFEN
     Indication: BACK PAIN
  3. ADVIL [Suspect]
     Active Substance: IBUPROFEN
     Indication: ARTHRITIS
     Dosage: TWO CAPSULES IN MORNING AND TWO IN NIGHT
     Dates: start: 201606

REACTIONS (6)
  - Poor quality drug administered [Unknown]
  - Foreign body [Unknown]
  - Dysgeusia [Unknown]
  - Intentional product misuse [Unknown]
  - Product physical issue [Unknown]
  - Product taste abnormal [Unknown]

NARRATIVE: CASE EVENT DATE: 201606
